FAERS Safety Report 17610582 (Version 2)
Quarter: 2020Q2

REPORT INFORMATION
  Report Type: Spontaneous
  Country: NL (occurrence: NL)
  Receive Date: 20200401
  Receipt Date: 20200423
  Transmission Date: 20200713
  Serious: Yes (Hospitalization)
  Sender: FDA-Public Use
  Company Number: NL-PFIZER INC-2020132900

PATIENT
  Age: 62 Year
  Sex: Male
  Weight: 114 kg

DRUGS (1)
  1. MERONEM [Suspect]
     Active Substance: MEROPENEM
     Indication: LIVER ABSCESS
     Dosage: 2000 MG, UNK
     Dates: start: 20200223, end: 20200303

REACTIONS (5)
  - C-reactive protein increased [Recovering/Resolving]
  - Drug reaction with eosinophilia and systemic symptoms [Recovering/Resolving]
  - Rash [Recovering/Resolving]
  - Renal impairment [Recovering/Resolving]
  - Eosinophilia [Recovering/Resolving]

NARRATIVE: CASE EVENT DATE: 20200228
